FAERS Safety Report 4325017-7 (Version None)
Quarter: 2004Q1

REPORT INFORMATION
  Report Type: 
  Country: None (occurrence: None)
  Receive Date: 20040326
  Receipt Date: 20040326
  Transmission Date: 20041129
  Serious: Yes (Hospitalization)
  Sender: FDA-Public Use
  Company Number: None

PATIENT
  Age: 64 Year
  Sex: Female
  Weight: 59.9 kg

DRUGS (1)
  1. SKELAXIN [Suspect]
     Dosage: 400 MG 1 ORAL
     Route: 048
     Dates: start: 20040321, end: 20040321

REACTIONS (4)
  - DYSSTASIA [None]
  - SENSATION OF HEAVINESS [None]
  - SPEECH DISORDER [None]
  - TRANSIENT ISCHAEMIC ATTACK [None]
